FAERS Safety Report 15582108 (Version 1)
Quarter: 2018Q4

REPORT INFORMATION
  Report Type: Spontaneous
  Country: FR (occurrence: FR)
  Receive Date: 20181105
  Receipt Date: 20181105
  Transmission Date: 20190205
  Serious: Yes (Other)
  Sender: FDA-Public Use
  Company Number: FR-ROCHE-2210056

PATIENT
  Age: 32 Year
  Sex: Female

DRUGS (1)
  1. RITUXIMAB. [Suspect]
     Active Substance: RITUXIMAB
     Indication: NEUROMYELITIS OPTICA SPECTRUM DISORDER
     Dosage: TWO DOSES OF 1 G RITUXIMAB SEPARATED BY 15 DAYS?EVERY 6 MONTHS AS ONE CYCLE
     Route: 042
     Dates: start: 201602

REACTIONS (2)
  - Neutropenia [Unknown]
  - Optic neuritis [Recovering/Resolving]
